FAERS Safety Report 6279080-7 (Version None)
Quarter: 2009Q3

REPORT INFORMATION
  Report Type: 
  Country: None (occurrence: None)
  Receive Date: 20090720
  Receipt Date: 20090720
  Transmission Date: 20100115
  Serious: Yes (Other)
  Sender: FDA-Public Use
  Company Number: None

PATIENT
  Age: 74 Year
  Sex: Male
  Weight: 90.7194 kg

DRUGS (1)
  1. LYRICA [Suspect]
     Indication: HIP ARTHROPLASTY
     Dosage: 1 TABLET -LOWEST DOSE- 1 AM/1PM PO
     Route: 048
     Dates: start: 20090109, end: 20090111

REACTIONS (3)
  - ABNORMAL BEHAVIOUR [None]
  - CLUMSINESS [None]
  - MEMORY IMPAIRMENT [None]
